FAERS Safety Report 6538922-8 (Version None)
Quarter: 2010Q1

REPORT INFORMATION
  Report Type: 
  Country: None (occurrence: None)
  Receive Date: 20100115
  Receipt Date: 20100111
  Transmission Date: 20100710
  Serious: Yes (Other)
  Sender: FDA-Public Use
  Company Number: JP-ROCHE-678889

PATIENT
  Age: 31 Year
  Sex: Male

DRUGS (5)
  1. GANCICLOVIR SODIUM [Suspect]
     Indication: ANTIVIRAL PROPHYLAXIS
     Route: 042
  2. CYTARABINE [Concomitant]
     Indication: THERAPEUTIC PROCEDURE
  3. CYCLOSPORINE [Concomitant]
     Indication: PROPHYLAXIS AGAINST GRAFT VERSUS HOST DISEASE
  4. METHOTREXATE [Concomitant]
     Indication: PROPHYLAXIS AGAINST GRAFT VERSUS HOST DISEASE
     Dosage: SHORT TERM
  5. ACYCLOVIR [Concomitant]
     Indication: ANTIVIRAL PROPHYLAXIS
     Dosage: FROM 3 DAYS BEFORE TRANSPLANT UNTIL DAY 14 POST-TRANSPLANT

REACTIONS (1)
  - BONE MARROW TOXICITY [None]
